FAERS Safety Report 4791601-X (Version None)
Quarter: 2005Q4

REPORT INFORMATION
  Report Type: 
  Country: None (occurrence: None)
  Receive Date: 20051007
  Receipt Date: 20050527
  Transmission Date: 20060501
  Serious: No
  Sender: FDA-Public Use
  Company Number: US-BRISTOL-MYERS SQUIBB COMPANY-12989695

PATIENT
  Age: 56 Year
  Sex: Male

DRUGS (5)
  1. AVAPRO [Suspect]
  2. UROXATRAL [Suspect]
     Dates: start: 20050501
  3. SYNTHROID [Concomitant]
  4. LEXAPRO [Concomitant]
  5. XANAX [Concomitant]

REACTIONS (1)
  - BLOOD PRESSURE DECREASED [None]
